FAERS Safety Report 6188876-1 (Version None)
Quarter: 2009Q2

REPORT INFORMATION
  Report Type: 
  Country: None (occurrence: None)
  Receive Date: 20090513
  Receipt Date: 20090504
  Transmission Date: 20091009
  Serious: Yes (Other)
  Sender: FDA-Public Use
  Company Number: PHHY2009FR17145

PATIENT
  Age: 65 Year
  Sex: Male

DRUGS (3)
  1. FEMARA [Suspect]
  2. TAXOTERE [Concomitant]
  3. ACTONEL [Concomitant]
     Indication: OSTEOPENIA
     Dosage: 35 MG, QW

REACTIONS (1)
  - HYPERTRICHOSIS [None]
